FAERS Safety Report 10355488 (Version 3)
Quarter: 2014Q4

REPORT INFORMATION
  Report Type: Spontaneous
  Country: US (occurrence: US)
  Receive Date: 20140731
  Receipt Date: 20141110
  Transmission Date: 20150528
  Serious: Yes (Death, Hospitalization, Other)
  Sender: FDA-Public Use
  Company Number: US-JNJFOC-20140721003

PATIENT
  Age: 63 Year
  Sex: Female
  Weight: 66 kg

DRUGS (16)
  1. PEPCID [Concomitant]
     Active Substance: FAMOTIDINE
  2. NORTRIPTYLINE [Concomitant]
     Active Substance: NORTRIPTYLINE
  3. VALTREX [Concomitant]
     Active Substance: VALACYCLOVIR HYDROCHLORIDE
  4. DICYCLOMINE [Concomitant]
     Active Substance: DICYCLOMINE HYDROCHLORIDE
  5. FLUTICASONE [Concomitant]
     Active Substance: FLUTICASONE\FLUTICASONE PROPIONATE
  6. ACETAMINOPHEN. [Concomitant]
     Active Substance: ACETAMINOPHEN
  7. ALPRAZOLAM. [Concomitant]
     Active Substance: ALPRAZOLAM
  8. IRBESARTAN. [Concomitant]
     Active Substance: IRBESARTAN
  9. LORATADINE. [Concomitant]
     Active Substance: LORATADINE
  10. ZOLPIDEM [Concomitant]
     Active Substance: ZOLPIDEM\ZOLPIDEM TARTRATE
  11. ZANAFLEX [Concomitant]
     Active Substance: TIZANIDINE HYDROCHLORIDE
  12. ALBUTEROL. [Concomitant]
     Active Substance: ALBUTEROL
  13. IMBRUVICA [Suspect]
     Active Substance: IBRUTINIB
     Indication: CHRONIC LYMPHOCYTIC LEUKAEMIA
     Route: 048
     Dates: start: 20140602, end: 20140614
  14. NAPROSYN [Concomitant]
     Active Substance: NAPROXEN
  15. LOVENOX [Concomitant]
     Active Substance: ENOXAPARIN SODIUM
  16. VENLAFAXINE [Concomitant]
     Active Substance: VENLAFAXINE HYDROCHLORIDE

REACTIONS (6)
  - Organising pneumonia [Fatal]
  - Diffuse alveolar damage [Fatal]
  - Incorrect dose administered [Unknown]
  - Granuloma [Fatal]
  - Respiratory failure [Fatal]
  - Lung infiltration [Fatal]

NARRATIVE: CASE EVENT DATE: 201406
